FAERS Safety Report 17366362 (Version 2)
Quarter: 2020Q1

REPORT INFORMATION
  Report Type: Spontaneous
  Country: US (occurrence: US)
  Receive Date: 20200120
  Receipt Date: 20200120
  Transmission Date: 20200409
  Serious: No
  Sender: FDA-Public Use
  Company Number: None

PATIENT
  Age: 68 Year
  Sex: Female

DRUGS (1)
  1. BEXAROTENE 75MG CAP [Suspect]
     Active Substance: BEXAROTENE
     Route: 048
     Dates: start: 20191215

REACTIONS (2)
  - Product dose omission [None]
  - Product use complaint [None]

NARRATIVE: CASE EVENT DATE: 20200120
